FAERS Safety Report 4737796-5 (Version None)
Quarter: 2005Q3

REPORT INFORMATION
  Report Type: 
  Country: None (occurrence: None)
  Receive Date: 20050809
  Receipt Date: 20050803
  Transmission Date: 20060218
  Serious: Yes (Hospitalization)
  Sender: FDA-Public Use
  Company Number: 2005CG01350

PATIENT
  Age: 68 Year
  Sex: Male

DRUGS (3)
  1. NEXIUM [Suspect]
     Route: 048
     Dates: start: 20041230, end: 20050121
  2. PRIMPERAN INJ [Suspect]
     Route: 048
     Dates: start: 20050117, end: 20050121
  3. DEROXAT [Concomitant]
     Route: 048
     Dates: start: 20041115, end: 20050117

REACTIONS (2)
  - BLOOD CREATININE INCREASED [None]
  - ENCEPHALOPATHY [None]
